FAERS Safety Report 8986859 (Version 2)
Quarter: 2013Q1

REPORT INFORMATION
  Report Type: Spontaneous
  Country: DK (occurrence: DK)
  Receive Date: 20121226
  Receipt Date: 20130117
  Transmission Date: 20140127
  Serious: Yes (Other)
  Sender: FDA-Public Use
  Company Number: PHHY2012DK118617

PATIENT
  Age: 46 Year
  Sex: Male
  Weight: 103 kg

DRUGS (4)
  1. DICILLIN [Suspect]
     Indication: STAPHYLOCOCCAL INFECTION
     Dosage: 1000 MG, TID
     Route: 048
     Dates: start: 20121115, end: 20121205
  2. CISORDINOL [Interacting]
     Indication: SCHIZOPHRENIA, PARANOID TYPE
     Dosage: 16 MG, QD
  3. ALPRAZOLAM [Concomitant]
     Indication: SCHIZOPHRENIA, PARANOID TYPE
     Dosage: 3 MG
  4. RIVOTRIL [Concomitant]
     Indication: SCHIZOPHRENIA, PARANOID TYPE
     Dosage: 2 MG

REACTIONS (4)
  - Dizziness [Recovered/Resolved]
  - Influenza like illness [Recovered/Resolved]
  - Suicidal ideation [Recovered/Resolved]
  - Drug interaction [Recovered/Resolved]
